FAERS Safety Report 25956199 (Version 1)
Quarter: 2025Q4

REPORT INFORMATION
  Report Type: Spontaneous
  Country: EU (occurrence: EU)
  Receive Date: 20251024
  Receipt Date: 20251024
  Transmission Date: 20260117
  Serious: Yes (Other)
  Sender: ALK-ABELLO
  Company Number: EU-ALK-ABELLO A/S-2025AA003588

PATIENT

DRUGS (2)
  1. ACARIZAX [Suspect]
     Active Substance: DERMATOPHAGOIDES FARINAE\DERMATOPHAGOIDES PTERONYSSINUS
     Indication: Rhinitis allergic
     Dosage: UNK
     Dates: start: 202510, end: 202510
  2. ACARIZAX [Suspect]
     Active Substance: DERMATOPHAGOIDES FARINAE\DERMATOPHAGOIDES PTERONYSSINUS
     Indication: Asthma

REACTIONS (3)
  - Nausea [Unknown]
  - Anxiety [Unknown]
  - Lip oedema [Unknown]

NARRATIVE: CASE EVENT DATE: 20251001
